FAERS Safety Report 22052251 (Version 6)
Quarter: 2023Q2

REPORT INFORMATION
  Report Type: Report from Study
  Country: CN (occurrence: CN)
  Receive Date: 20230302
  Receipt Date: 20230530
  Transmission Date: 20230721
  Serious: Yes (Hospitalization)
  Sender: FDA-Public Use
  Company Number: CN-UCBSA-2023006857

PATIENT
  Age: 4 Year
  Sex: Male
  Weight: 20 kg

DRUGS (44)
  1. LACOSAMIDE [Suspect]
     Active Substance: LACOSAMIDE
     Indication: Epilepsy
     Dosage: 50 MILLIGRAM
     Dates: start: 20230124, end: 20230125
  2. LACOSAMIDE [Suspect]
     Active Substance: LACOSAMIDE
     Dosage: 75 MILLIGRAM (TITRATION)
     Dates: start: 20230126, end: 20230131
  3. LACOSAMIDE [Suspect]
     Active Substance: LACOSAMIDE
     Dosage: 100 MILLIGRAM (TITRATION)
     Dates: start: 20230201
  4. AMBROXOL HYDROCHLORIDE [Concomitant]
     Active Substance: AMBROXOL HYDROCHLORIDE
     Indication: Prophylaxis
     Dosage: 7.5 MILLIGRAM, 3X/DAY (TID)
     Dates: start: 20221227, end: 20230111
  5. AMBROXOL HYDROCHLORIDE AND CLENBUTEROL HYDROCHLORIDE [Concomitant]
     Indication: Prophylaxis
     Dosage: 10 MILLILITER, 2X/DAY (BID)
     Dates: start: 20221230, end: 20230116
  6. ACYCLOVIR [Concomitant]
     Active Substance: ACYCLOVIR
     Indication: Product used for unknown indication
     Dosage: 0.5 GRAM, 3X/DAY (TID)
     Dates: start: 20230103, end: 20230112
  7. ACYCLOVIR [Concomitant]
     Active Substance: ACYCLOVIR
     Dosage: 0.25 GRAM, ONCE DAILY (QD)
     Dates: start: 20221226, end: 20230103
  8. ACETAMINOPHEN [Concomitant]
     Active Substance: ACETAMINOPHEN
     Indication: Pyrexia
     Dosage: 6.7 MILLILITER, 4X/DAY (QID)
     Dates: start: 20221230, end: 20230106
  9. CLONAZEPAM [Concomitant]
     Active Substance: CLONAZEPAM
     Indication: Epilepsy
     Dosage: 1 MILLIGRAM, 2X/DAY (BID)
     Dates: start: 20230124, end: 20230124
  10. CLONAZEPAM [Concomitant]
     Active Substance: CLONAZEPAM
     Dosage: 1.5 MILLIGRAM, 2X/DAY (BID)
     Dates: start: 20230125
  11. CLONAZEPAM [Concomitant]
     Active Substance: CLONAZEPAM
     Dosage: 1 MILLIGRAM, ONCE DAILY (QD)
     Dates: start: 20230128
  12. DOMPERIDONE [Concomitant]
     Active Substance: DOMPERIDONE
     Indication: Prophylaxis
     Dosage: 7 MILLIGRAM, 2X/2 DAYS
     Dates: start: 20221228, end: 20230111
  13. DEXAMETHASONE SODIUM PHOSPHATE [Concomitant]
     Active Substance: DEXAMETHASONE SODIUM PHOSPHATE
     Indication: Antiinflammatory therapy
     Dosage: 2 MILLIGRAM, 2X/DAY (BID)
     Dates: start: 20221230, end: 20230111
  14. GLUTATHIONE [Concomitant]
     Active Substance: GLUTATHIONE
     Indication: Prophylaxis
     Dosage: 1.2 GRAM, ONCE DAILY (QD)
     Dates: start: 20230127, end: 20230201
  15. GLUTATHIONE [Concomitant]
     Active Substance: GLUTATHIONE
     Dosage: UNK, 3X/DAY (TID)
  16. GLUTATHION CELL SUPPORT [Concomitant]
     Indication: Prophylaxis
     Dosage: 1.2 GRAM, ONCE DAILY (QD)
     Dates: start: 20230127, end: 20230201
  17. GLUTATHION CELL SUPPORT [Concomitant]
     Dosage: UNK, 3X/DAY (TID)
  18. HUMAN IMMUNOGLOBULIN G [Concomitant]
     Active Substance: HUMAN IMMUNOGLOBULIN G
     Indication: Immunodeficiency
     Dosage: 50 MILLILITRE PER KILOGRAM, 4X/DAY (QID)
     Dates: start: 20230209
  19. HUMAN IMMUNOGLOBULIN G [Concomitant]
     Active Substance: HUMAN IMMUNOGLOBULIN G
     Dosage: 30 GRAM
  20. HUMAN IMMUNOGLOBULIN G [Concomitant]
     Active Substance: HUMAN IMMUNOGLOBULIN G
     Dosage: 50 MILLILITER, 4X/DAY (QID)
     Dates: start: 20230209, end: 20230211
  21. LINEZOLID [Concomitant]
     Active Substance: LINEZOLID
     Indication: Product used for unknown indication
     Dosage: 200 MILLIGRAM, 3X/DAY (TID)
     Dates: start: 20230120, end: 20230131
  22. LEVOCETIRIZINE HYDROCHLORIDE [Concomitant]
     Active Substance: LEVOCETIRIZINE HYDROCHLORIDE
     Indication: Hypersensitivity
     Dosage: 2 GRAM, ONCE DAILY (QD)
  23. LEVOCARNITINE [Concomitant]
     Active Substance: LEVOCARNITINE
     Indication: Metabolic disorder
     Dosage: 5 MILLILITER, 2X/DAY (BID)
     Dates: start: 20230201
  24. METHYLCOBALAMIN [Concomitant]
     Active Substance: METHYLCOBALAMIN
     Indication: Auditory nerve disorder
     Dosage: 0.5 MILLIGRAM, ONCE DAILY (QD)
     Dates: start: 20230120
  25. METHYLPREDNISOLONE SODIUM SUCCINATE [Concomitant]
     Active Substance: METHYLPREDNISOLONE SODIUM SUCCINATE
     Indication: Antiinflammatory therapy
     Dosage: 0.4 GRAM, ONCE DAILY (QD)
     Dates: start: 20230125, end: 20230127
  26. OMEPRAZOLE SODIUM [Concomitant]
     Active Substance: OMEPRAZOLE SODIUM
     Indication: Prophylaxis
     Dosage: 20 MILLIGRAM, ONCE DAILY (QD)
     Dates: start: 20230126, end: 20230127
  27. PIPERACILLIN SODIUM\SULBACTAM SODIUM [Concomitant]
     Active Substance: PIPERACILLIN SODIUM\SULBACTAM SODIUM
     Indication: Product used for unknown indication
     Dosage: 1.5 GRAM, 3X/DAY (TID)
     Dates: start: 20230109, end: 20230116
  28. PREDNISONE ACETATE [Concomitant]
     Active Substance: PREDNISONE ACETATE
     Indication: Antiinflammatory therapy
     Dosage: 35 MILLIGRAM, ONCE DAILY (QD)
     Dates: start: 20230121, end: 20230124
  29. PREDNISONE ACETATE [Concomitant]
     Active Substance: PREDNISONE ACETATE
     Dosage: 40 MILLIGRAM, ONCE DAILY (QD)
     Dates: start: 20230201, end: 20230207
  30. PREDNISONE ACETATE [Concomitant]
     Active Substance: PREDNISONE ACETATE
     Dosage: 30 MILLIGRAM, ONCE DAILY (QD)
     Dates: start: 20230208, end: 20230218
  31. PREDNISONE ACETATE [Concomitant]
     Active Substance: PREDNISONE ACETATE
     Dosage: 20 MILLIGRAM, ONCE DAILY (QD)
     Dates: start: 20230219, end: 20230321
  32. PREDNISONE ACETATE [Concomitant]
     Active Substance: PREDNISONE ACETATE
     Dosage: 15 MILLIGRAM, ONCE DAILY (QD)
     Dates: start: 20230322
  33. PHENOBARBITAL SODIUM [Concomitant]
     Active Substance: PHENOBARBITAL SODIUM
     Indication: Feeling of relaxation
     Dosage: 0.1 GRAM, ONCE DAILY (QD)
     Dates: start: 20230125, end: 20230127
  34. VALPROATE SODIUM [Concomitant]
     Active Substance: VALPROATE SODIUM
     Indication: Epilepsy
     Dosage: 5.4 MILLILITER, 3X/DAY (TID)
     Dates: start: 20221226, end: 20230116
  35. VALPROATE SODIUM [Concomitant]
     Active Substance: VALPROATE SODIUM
     Dosage: 7.5 MILLILITER, 2X/DAY (BID)
     Dates: start: 20230123
  36. VITAMIN B6 [Concomitant]
     Active Substance: PYRIDOXINE HYDROCHLORIDE
     Indication: Cranial nerve disorder
     Dosage: 10 MILLIGRAM, 3X/DAY (TID)
     Dates: start: 20230201
  37. VITAMIN C [Concomitant]
     Active Substance: ASCORBIC ACID
     Indication: Hypersensitivity
     Dosage: 2 GRAM, ONCE DAILY (QD)
     Dates: start: 20230209, end: 20230219
  38. GLUTATHIONE [Concomitant]
     Active Substance: GLUTATHIONE
     Indication: Prophylaxis
     Dosage: 1.2 GRAM, ONCE DAILY (QD)
     Dates: start: 20230209, end: 20230219
  39. GLYCYRRHIZIN [Concomitant]
     Active Substance: GLYCYRRHIZIN
     Indication: Adverse event
     Dosage: 1 TAB, 3 TIMES PER DAY
     Dates: start: 20230210, end: 20230307
  40. NYSTATIN [Concomitant]
     Active Substance: NYSTATIN
     Indication: Adverse event
     Dosage: 10 TAB, TWICE PER DAY
     Dates: start: 20230421, end: 20230426
  41. SODIUM BICARBONATE [Concomitant]
     Active Substance: SODIUM BICARBONATE
     Indication: Adverse event
     Dosage: 3 GRAM, 2X/DAY (BID)
     Dates: start: 20230421
  42. VITAMIN D2 CALCIUM PHOSPHATE AND CALCIUM GLUCONATE [Concomitant]
     Indication: Prophylaxis
     Dosage: 1 TAB 3 TIMES PER DAY
     Dates: start: 20230422
  43. CALCITRIOL [Concomitant]
     Active Substance: CALCITRIOL
     Indication: Prophylaxis
     Dosage: 1 CAPSULE ONCE PER DAY
     Dates: start: 20230422
  44. INTERFERON [Concomitant]
     Active Substance: INTERFERON
     Indication: Product used for unknown indication
     Dosage: 20 MICROGRAM, ONCE DAILY (QD)
     Dates: start: 20221226, end: 20230103

REACTIONS (2)
  - Dermatitis allergic [Recovered/Resolved]
  - Oral fungal infection [Recovered/Resolved]

NARRATIVE: CASE EVENT DATE: 20230204
